FAERS Safety Report 26095764 (Version 1)
Quarter: 2025Q4

REPORT INFORMATION
  Report Type: Spontaneous
  Country: US (occurrence: US)
  Receive Date: 20251127
  Receipt Date: 20251127
  Transmission Date: 20260117
  Serious: Yes (Other)
  Sender: INGENUS
  Company Number: US-INGENUS PHARMACEUTICALS, LLC-2025INF000048

PATIENT
  Age: 34 Year
  Sex: Female

DRUGS (3)
  1. CABERGOLINE [Suspect]
     Active Substance: CABERGOLINE
     Indication: Insulin-like growth factor increased
     Dosage: 0.5 MILLIGRAM TWICE WEEKLY
     Route: 065
  2. LANREOTIDE [Concomitant]
     Active Substance: LANREOTIDE
     Indication: Insulin-like growth factor increased
     Dosage: 90 MILLIGRAM EVERY 4 WEEKS
     Route: 065
  3. LEVOTHYROXINE [Concomitant]
     Active Substance: LEVOTHYROXINE
     Indication: Central hypothyroidism
     Dosage: 75 MICROGRAM DAILY
     Route: 065

REACTIONS (3)
  - Adrenocortical insufficiency acute [Recovering/Resolving]
  - Gambling [Recovered/Resolved]
  - Product use in unapproved indication [Unknown]
